FAERS Safety Report 4283532-9 (Version None)
Quarter: 2004Q1

REPORT INFORMATION
  Report Type: 
  Country: None (occurrence: None)
  Receive Date: 20040121
  Receipt Date: 20030406
  Transmission Date: 20041129
  Serious: Yes (Other)
  Sender: FDA-Public Use
  Company Number: A03200300745

PATIENT
  Age: 49 Year
  Sex: Female
  Weight: 81.6475 kg

DRUGS (11)
  1. PLAVIX [Suspect]
     Indication: CHEST PAIN
     Dosage: 75 MG QD ORAL
     Route: 048
     Dates: start: 20030401, end: 20030401
  2. PLAVIX [Suspect]
     Indication: ELECTROCARDIOGRAM CHANGE
     Dosage: 75 MG QD ORAL
     Route: 048
     Dates: start: 20030401, end: 20030401
  3. PHENOBARBITAL TAB [Concomitant]
  4. PHENYTOIN SODIUM [Concomitant]
  5. LAMOTRIGINE [Concomitant]
  6. ESTROGENS/MEDPROXYPROGESTERONE [Concomitant]
  7. HYDROCHLOROTHIAZIDE [Concomitant]
  8. SERTRALINE HCL [Concomitant]
  9. QUETIAPINE HYDROCHLORIDE [Concomitant]
  10. VITAMIN E [Concomitant]
  11. VERAPAMIL [Concomitant]

REACTIONS (3)
  - DYSPNOEA [None]
  - EPISTAXIS [None]
  - URTICARIA [None]
